FAERS Safety Report 4373839-9 (Version None)
Quarter: 2004Q1

REPORT INFORMATION
  Report Type: 
  Country: None (occurrence: None)
  Receive Date: 20040305
  Receipt Date: 20040216
  Transmission Date: 20041129
  Serious: Yes (Other)
  Sender: FDA-Public Use
  Company Number: 2004UW00585

PATIENT
  Age: 46 Year
  Sex: Female
  Weight: 104.3273 kg

DRUGS (6)
  1. CRESTOR [Suspect]
     Indication: BLOOD CHOLESTEROL INCREASED
     Dosage: 10 MG PO
     Route: 048
  2. ACCUPRIL [Concomitant]
  3. TAMOXIFEN CITRATE [Concomitant]
  4. WARFARIN SODIUM [Concomitant]
  5. NPH INSULIN [Concomitant]
  6. HUMALOG [Concomitant]

REACTIONS (2)
  - HEART RATE INCREASED [None]
  - HYPOTRICHOSIS [None]
